FAERS Safety Report 9048999 (Version 1)
Quarter: 2013Q1

REPORT INFORMATION
  Report Type: Spontaneous
  Country: DK (occurrence: None)
  Receive Date: 20130117
  Receipt Date: 20130117
  Transmission Date: 20140127
  Serious: Yes (Hospitalization, Other)
  Sender: FDA-Public Use
  Company Number: 2013MA000420

PATIENT
  Age: 65 Year
  Sex: Male

DRUGS (3)
  1. BUTALBITAL, ASPIRIN AND CAFFEINE [Suspect]
     Indication: ATRIAL FIBRILLATION
     Dates: start: 201106, end: 20121206
  2. BISOPROLOL [Concomitant]
  3. RAMIPRIL [Concomitant]

REACTIONS (2)
  - Gastric haemorrhage [None]
  - Gastric ulcer [None]
